FAERS Safety Report 7686911-2 (Version None)
Quarter: 2011Q3

REPORT INFORMATION
  Report Type: 
  Country: None (occurrence: None)
  Receive Date: 20110816
  Receipt Date: 20110809
  Transmission Date: 20111222
  Serious: Yes (Life-Threatening)
  Sender: FDA-Public Use
  Company Number: JP-ASTRAZENECA-2011SE48353

PATIENT
  Age: 25010 Day
  Sex: Male

DRUGS (12)
  1. TARGOCID [Suspect]
     Indication: SEPSIS
     Route: 065
     Dates: start: 20110319
  2. GRAN [Concomitant]
     Indication: NEUTROPENIA
     Route: 030
     Dates: start: 20110324, end: 20110403
  3. NORVASC [Concomitant]
     Indication: HYPERTENSION
     Route: 048
  4. RECOMODULIN [Concomitant]
     Indication: DISSEMINATED INTRAVASCULAR COAGULATION
     Dates: start: 20110401
  5. MAXIPIME [Concomitant]
     Indication: SEPSIS
     Dates: start: 20110405
  6. CONCENTRATED HUMAN RED BLOOD CELLS [Concomitant]
     Dates: start: 20110321, end: 20110323
  7. MEROPENEM [Suspect]
     Indication: SEPSIS
     Route: 042
     Dates: start: 20110317, end: 20110404
  8. CONCENTRATED HUMAN BLOOD PLATELET [Concomitant]
     Route: 065
     Dates: start: 20110317, end: 20110401
  9. OMEPRAZOLE [Concomitant]
     Indication: GASTRIC ULCER
     Dates: start: 20110319
  10. SULFAMETHOXAZOLE [Concomitant]
     Indication: PNEUMOCYSTIS JIROVECI PNEUMONIA
     Route: 048
     Dates: start: 20110328, end: 20110403
  11. AMBISOME [Suspect]
     Indication: BRONCHOPULMONARY ASPERGILLOSIS
     Route: 065
     Dates: start: 20110318
  12. AMBISOME [Suspect]
     Route: 065
     Dates: start: 20110412

REACTIONS (1)
  - RENAL FAILURE [None]
